FAERS Safety Report 9195857 (Version 1)
Quarter: 2013Q1

REPORT INFORMATION
  Report Type: Report from Study
  Country: US (occurrence: US)
  Receive Date: 20130328
  Receipt Date: 20130328
  Transmission Date: 20140127
  Serious: Yes (Hospitalization)
  Sender: FDA-Public Use
  Company Number: US-JNJFOC-20130314680

PATIENT
  Age: 13 Year
  Sex: Male
  Weight: 44 kg

DRUGS (2)
  1. REMICADE [Suspect]
     Indication: INFLAMMATORY BOWEL DISEASE
     Dosage: 8 TREATMENTS
     Route: 042
     Dates: start: 20120607, end: 20121209
  2. PREDNISONE [Concomitant]
     Route: 065

REACTIONS (1)
  - Ileal stenosis [Recovered/Resolved]
